FAERS Safety Report 20046632 (Version 1)
Quarter: 2021Q4

REPORT INFORMATION
  Report Type: Spontaneous
  Country: IE (occurrence: IE)
  Receive Date: 20211109
  Receipt Date: 20211109
  Transmission Date: 20220303
  Serious: Yes (Other)
  Sender: FDA-Public Use
  Company Number: IE-ASPEN-GLO2021IE008762

PATIENT

DRUGS (4)
  1. SUCCINYLCHOLINE CHLORIDE [Suspect]
     Active Substance: SUCCINYLCHOLINE CHLORIDE
     Indication: Endotracheal intubation
     Dosage: 160 MG
     Route: 042
  2. DEXAMETHASONE [Suspect]
     Active Substance: DEXAMETHASONE
     Indication: COVID-19
     Dosage: UNK
     Route: 065
  3. REMDESIVIR [Concomitant]
     Active Substance: REMDESIVIR
     Indication: COVID-19
     Dosage: UNK
     Route: 065
  4. ETOMIDATE [Concomitant]
     Active Substance: ETOMIDATE
     Indication: Endotracheal intubation
     Dosage: 16 MG
     Route: 042

REACTIONS (2)
  - Off label use [Unknown]
  - Hyperthermia malignant [Unknown]
